FAERS Safety Report 7969867-4 (Version None)
Quarter: 2011Q4

REPORT INFORMATION
  Report Type: 
  Country: None (occurrence: None)
  Receive Date: 20111121
  Receipt Date: 20110804
  Transmission Date: 20120403
  Serious: No
  Sender: FDA-Public Use
  Company Number: 1000022659

PATIENT
  Age: 54 Year
  Sex: Female

DRUGS (8)
  1. VIIBRYD [Suspect]
     Indication: DEPRESSION
     Dosage: 10 MG (10 MG, 1 IN 1 D), ORAL, 20 MG (20 MG, 1 IN 1 D), ORAL
     Route: 048
     Dates: start: 20110727, end: 20110802
  2. VIIBRYD [Suspect]
     Indication: DEPRESSION
     Dosage: 10 MG (10 MG, 1 IN 1 D), ORAL, 20 MG (20 MG, 1 IN 1 D), ORAL
     Route: 048
     Dates: start: 20110803
  3. DIOVAN [Concomitant]
  4. HYDROCHLOROTHIAZIDE [Concomitant]
  5. BENTYL (DICYCLOVERINE HYDROCHLORIDE) (DICYCLOVERINE HYDROCHLORIDE) [Concomitant]
  6. VIVACTIL (PROTRIPTYLINE HYDROCHLORIDE) (10 MILLIGRAM, TABLETS) (PROTRI [Concomitant]
  7. NEXIUM [Concomitant]
  8. XANAX [Concomitant]

REACTIONS (1)
  - NIGHTMARE [None]
